FAERS Safety Report 24259486 (Version 2)
Quarter: 2025Q1

REPORT INFORMATION
  Report Type: Spontaneous
  Country: JP (occurrence: JP)
  Receive Date: 20240828
  Receipt Date: 20250127
  Transmission Date: 20250409
  Serious: Yes (Other)
  Sender: MERCK
  Company Number: JP-MSD-M2024-33195

PATIENT
  Age: 4 Decade
  Sex: Female

DRUGS (3)
  1. KEYTRUDA [Suspect]
     Active Substance: PEMBROLIZUMAB
     Indication: Triple negative breast cancer
     Dosage: 200 MILLIGRAM, Q3W
     Route: 041
  2. EPIRUBICIN HYDROCHLORIDE [Concomitant]
     Active Substance: EPIRUBICIN HYDROCHLORIDE
     Dosage: UNK, Q3W
     Route: 041
  3. CYCLOPHOSPHAMIDE [Concomitant]
     Active Substance: CYCLOPHOSPHAMIDE
     Dosage: UNK, Q3W
     Route: 041

REACTIONS (1)
  - Diabetes mellitus [Recovering/Resolving]

NARRATIVE: CASE EVENT DATE: 20240801
